FAERS Safety Report 7752551 (Version 5)
Quarter: 2014Q4

REPORT INFORMATION
  Report Type: Report from Study
  Country: US (occurrence: US)
  Receive Date: 20101209
  Receipt Date: 20141014
  Transmission Date: 20150529
  Serious: Yes (Other)
  Sender: FDA-Public Use
  Company Number: US-009507513-2010SP062805

PATIENT
  Age: 0 Year

DRUGS (2)
  1. RIBAVIRIN. [Suspect]
     Active Substance: RIBAVIRIN
     Dosage: 1000 MG DAILY
     Route: 064
     Dates: start: 201001, end: 201006
  2. PEGASYS [Suspect]
     Active Substance: PEGINTERFERON ALFA-2A
     Dosage: UNK UNK, UNKNOWN
     Route: 064
     Dates: start: 201001, end: 201006

REACTIONS (2)
  - Foetal exposure during pregnancy [Recovered/Resolved]
  - Foetal heart rate decreased [Unknown]

NARRATIVE: CASE EVENT DATE: 20101119
